FAERS Safety Report 24670766 (Version 1)
Quarter: 2024Q4

REPORT INFORMATION
  Report Type: Spontaneous
  Country: US (occurrence: None)
  Receive Date: 20241127
  Receipt Date: 20241127
  Transmission Date: 20250114
  Serious: Yes (Hospitalization)
  Sender: Public
  Company Number: None

PATIENT
  Sex: Female

DRUGS (8)
  1. REBIF [Suspect]
     Active Substance: INTERFERON BETA-1A
     Indication: Multiple sclerosis
     Dosage: FREQUENCY : AS DIRECTED;?FREQ: INJECT 44 MCG UNDER THE SKIN (SUBCUTANEOUS INJECTION) THREE TIMES PER
     Route: 058
     Dates: start: 20200903
  2. CALCIUM [Concomitant]
     Active Substance: CALCIUM
  3. GLUCOSAMINE [Concomitant]
     Active Substance: GLUCOSAMINE
  4. IRON [Concomitant]
     Active Substance: IRON
  5. MAGNESIUM [Concomitant]
     Active Substance: MAGNESIUM
  6. REBIF [Concomitant]
     Active Substance: INTERFERON BETA-1A
  7. VITAMIN C [Concomitant]
     Active Substance: ASCORBIC ACID
  8. ZINC [Concomitant]
     Active Substance: ZINC

REACTIONS (4)
  - Illness [None]
  - Injection site reaction [None]
  - Candida infection [None]
  - Weight decreased [None]
